FAERS Safety Report 15394460 (Version 2)
Quarter: 2018Q3

REPORT INFORMATION
  Report Type: Spontaneous
  Country: BG (occurrence: BG)
  Receive Date: 20180918
  Receipt Date: 20180919
  Transmission Date: 20181010
  Serious: Yes (Death, Hospitalization, Other)
  Sender: FDA-Public Use
  Company Number: BG-ROCHE-2184509

PATIENT

DRUGS (3)
  1. ACTILYSE [Suspect]
     Active Substance: ALTEPLASE
     Indication: EPILEPSY
     Route: 065
  2. NIFEDIPIN [Concomitant]
     Active Substance: NIFEDIPINE
     Route: 065
  3. DIAZEPAM. [Concomitant]
     Active Substance: DIAZEPAM
     Indication: BLOOD PRESSURE MEASUREMENT
     Dosage: 1/2 AMPULE
     Route: 030

REACTIONS (4)
  - Cardiac arrest [Fatal]
  - Post procedural oedema [Fatal]
  - Angioedema [Recovered/Resolved]
  - Delirium tremens [Recovered/Resolved]
